FAERS Safety Report 5082745-6 (Version None)
Quarter: 2006Q3

REPORT INFORMATION
  Report Type: 
  Country: None (occurrence: None)
  Receive Date: 20060816
  Receipt Date: 20060816
  Transmission Date: 20061208
  Serious: Yes (Hospitalization)
  Sender: FDA-Public Use
  Company Number: None

PATIENT
  Sex: Male
  Weight: 121.9 kg

DRUGS (8)
  1. ANASTROZOLE [Suspect]
     Indication: HYPOGONADISM
     Dosage: 1 MG PO QD
     Route: 048
     Dates: start: 20050816, end: 20060815
  2. PLACEBO [Suspect]
     Dosage: 1 MG PO QD
     Route: 048
  3. ASPIRIN [Concomitant]
  4. LORATADINE [Concomitant]
  5. LISINOPRIL [Concomitant]
  6. LABETALOL HCL [Concomitant]
  7. HYDROCHLOROTHIAZIDE [Concomitant]
  8. TERAZOSIN HCL [Concomitant]

REACTIONS (2)
  - BRADYCARDIA [None]
  - SYNCOPE [None]
